FAERS Safety Report 4264427-3 (Version None)
Quarter: 2004Q1

REPORT INFORMATION
  Report Type: 
  Country: None (occurrence: None)
  Receive Date: 20040106
  Receipt Date: 20030922
  Transmission Date: 20041129
  Serious: Yes (Other)
  Sender: FDA-Public Use
  Company Number: GB-GLAXOSMITHKLINE-B0309783A

PATIENT
  Age: 35 Year
  Sex: Male

DRUGS (1)
  1. ZYBAN [Suspect]
     Indication: EX-SMOKER
     Dosage: 150MG UNKNOWN
     Route: 048

REACTIONS (4)
  - DIABETES MELLITUS [None]
  - HEADACHE [None]
  - THIRST [None]
  - VISUAL ACUITY REDUCED [None]
